FAERS Safety Report 14912877 (Version 1)
Quarter: 2018Q2

REPORT INFORMATION
  Report Type: Spontaneous
  Country: NL (occurrence: NL)
  Receive Date: 20180518
  Receipt Date: 20180518
  Transmission Date: 20180711
  Serious: Yes (Other)
  Sender: FDA-Public Use
  Company Number: NL-TEVA-2018-NL-894418

PATIENT
  Age: 31 Year
  Sex: Female
  Weight: 70 kg

DRUGS (1)
  1. PAROXETINE TABLET 20MG TABLET, 20 MG (MILLIGRAM) [Suspect]
     Active Substance: PAROXETINE
     Indication: DEPRESSED MOOD
     Dosage: 1X DAILY 2 TABLETS
     Dates: start: 201607, end: 201802

REACTIONS (7)
  - Diarrhoea [Recovered/Resolved]
  - Withdrawal syndrome [Recovered/Resolved]
  - Depressed mood [Recovered/Resolved]
  - Panic reaction [Recovered/Resolved]
  - Vomiting [Recovered/Resolved]
  - Suicidal ideation [Recovered/Resolved]
  - Chills [Recovered/Resolved]

NARRATIVE: CASE EVENT DATE: 20171101
